FAERS Safety Report 4621202-5 (Version None)
Quarter: 2005Q1

REPORT INFORMATION
  Report Type: 
  Country: None (occurrence: None)
  Receive Date: 20050328
  Receipt Date: 20050310
  Transmission Date: 20050727
  Serious: Yes (Other)
  Sender: FDA-Public Use
  Company Number: 2005-0008094

PATIENT
  Age: 43 Year
  Sex: Male
  Weight: 73 kg

DRUGS (6)
  1. VIREAD [Suspect]
     Indication: HIV INFECTION
     Dosage: 300 MG, 1 IN 1 D, ORAL
     Route: 048
     Dates: start: 20041206, end: 20041220
  2. INDINAVIR SULPHATE (INDINAVIR SULPHATE) [Concomitant]
  3. LAMIVUDINE [Concomitant]
  4. STAVUDINE [Concomitant]
  5. RITONAVIR (RITONAVIR) [Concomitant]
  6. ALOPURINOL (ALLOPURINOL) [Concomitant]

REACTIONS (4)
  - ANOREXIA [None]
  - MALAISE [None]
  - NAUSEA [None]
  - VERTIGO [None]
